FAERS Safety Report 8071663-7 (Version None)
Quarter: 2012Q1

REPORT INFORMATION
  Report Type: 
  Country: None (occurrence: None)
  Receive Date: 20120125
  Receipt Date: 20120110
  Transmission Date: 20120608
  Serious: Yes (Other)
  Sender: FDA-Public Use
  Company Number: HU-AMGEN-HUNSP2012001188

PATIENT
  Age: 7 Year
  Sex: Female

DRUGS (6)
  1. METHYLPREDNISOLONE [Suspect]
     Dosage: 5 MG, 1X/DAY
     Route: 048
  2. ENBREL [Suspect]
     Indication: JUVENILE ARTHRITIS
     Dosage: UNK
  3. METHOTREXATE SODIUM [Suspect]
     Dosage: 10 MG, WEEKLY
  4. ACTEMRA [Suspect]
     Dosage: UNK
  5. SOLU-MEDROL [Suspect]
     Indication: JUVENILE ARTHRITIS
     Dosage: 250 MG FOR 4 DAYS, UNK
     Route: 041
  6. SOLU-MEDROL [Suspect]
     Dosage: 250 MG FOR 4 DAYS
     Route: 041

REACTIONS (9)
  - ROSACEA [None]
  - RASH [None]
  - RASH PUSTULAR [None]
  - GASTROENTERITIS SALMONELLA [None]
  - VASCULITIS [None]
  - DRUG INEFFECTIVE [None]
  - RASH ERYTHEMATOUS [None]
  - IMPETIGO [None]
  - INFESTATION [None]
